FAERS Safety Report 9856930 (Version 2)
Quarter: 2014Q1

REPORT INFORMATION
  Report Type: Spontaneous
  Country: CA (occurrence: CA)
  Receive Date: 20140130
  Receipt Date: 20140130
  Transmission Date: 20141002
  Serious: Yes (Death, Hospitalization)
  Sender: FDA-Public Use
  Company Number: CA-CELGENEUS-028-21880-13042213

PATIENT
  Age: 38 Year
  Sex: Female
  Weight: 82.4 kg

DRUGS (24)
  1. REVLIMID [Suspect]
     Indication: PLASMA CELL MYELOMA
     Dosage: 25 MILLIGRAM
     Route: 048
     Dates: start: 20111004
  2. LENADEX [Suspect]
     Indication: PLASMA CELL MYELOMA
     Dosage: 40 MILLIGRAM
     Route: 065
     Dates: start: 20111003
  3. LENADEX [Suspect]
     Dosage: 20 MILLIGRAM
     Route: 048
     Dates: start: 20111004
  4. DEXAMETHASONE [Suspect]
     Indication: PLASMA CELL MYELOMA
     Dosage: 8 MILLIGRAM
     Route: 041
     Dates: start: 20111004
  5. ELOTUZUMAB [Suspect]
     Indication: PLASMA CELL MYELOMA
     Route: 065
     Dates: start: 20111003
  6. ELOTUZUMAB [Suspect]
     Route: 041
     Dates: start: 20111004, end: 20130402
  7. LORAZEPAM [Concomitant]
     Indication: PRODUCT USED FOR UNKNOWN INDICATION
     Route: 065
     Dates: start: 200806
  8. PERCOCET [Concomitant]
     Indication: PRODUCT USED FOR UNKNOWN INDICATION
     Route: 065
     Dates: start: 200806
  9. ZOMETA [Concomitant]
     Indication: PRODUCT USED FOR UNKNOWN INDICATION
     Route: 065
     Dates: start: 20110815
  10. ASPIRIN [Concomitant]
     Indication: PRODUCT USED FOR UNKNOWN INDICATION
     Route: 065
     Dates: start: 20111003
  11. PROCHLORAZINE [Concomitant]
     Indication: PRODUCT USED FOR UNKNOWN INDICATION
     Route: 065
     Dates: start: 20111010
  12. ACETAMINOPHEN [Concomitant]
     Indication: PRODUCT USED FOR UNKNOWN INDICATION
     Route: 065
     Dates: start: 20111011
  13. STEMETIL [Concomitant]
     Indication: ADVERSE EVENT
     Route: 065
     Dates: start: 20111024, end: 20111029
  14. CEFUROXIME [Concomitant]
     Indication: ADVERSE EVENT
     Route: 065
     Dates: start: 20120424, end: 20120430
  15. VENTOLIN [Concomitant]
     Indication: ADVERSE EVENT
     Route: 065
     Dates: start: 20120424
  16. EXCEDRIN MIGRAINE [Concomitant]
     Indication: ADVERSE EVENT
     Route: 065
     Dates: start: 20120709
  17. RABEPRAZOLE [Concomitant]
     Indication: ADVERSE EVENT
     Route: 065
     Dates: start: 20120709
  18. PANTOLOC [Concomitant]
     Indication: ADVERSE EVENT
     Route: 065
     Dates: start: 20120807
  19. AZITHROMYCIN [Concomitant]
     Indication: ADVERSE EVENT
     Route: 065
     Dates: start: 20120724, end: 20120728
  20. AZITHROMYCIN [Concomitant]
     Route: 065
     Dates: start: 20120907, end: 20120912
  21. AZITHROMYCIN [Concomitant]
     Route: 065
     Dates: start: 20130108, end: 20130112
  22. AZITHROMYCIN [Concomitant]
     Route: 065
     Dates: start: 20130304, end: 20130308
  23. ADVAIR [Concomitant]
     Indication: PRODUCT USED FOR UNKNOWN INDICATION
     Route: 055
     Dates: start: 20120807
  24. ADVAIR [Concomitant]
     Route: 055
     Dates: start: 201211

REACTIONS (2)
  - Plasma cell myeloma [Fatal]
  - Pyrexia [Recovered/Resolved]
